FAERS Safety Report 6474151-4 (Version None)
Quarter: 2009Q4

REPORT INFORMATION
  Report Type: 
  Country: None (occurrence: None)
  Receive Date: 20091124
  Receipt Date: 20091116
  Transmission Date: 20100525
  Serious: Yes (Death, Hospitalization)
  Sender: FDA-Public Use
  Company Number: THYM-1001062

PATIENT
  Age: 80 Year
  Sex: Female
  Weight: 40 kg

DRUGS (9)
  1. THYMOGLOBULIN [Suspect]
     Indication: APLASTIC ANAEMIA
     Dosage: 52.5 MG, ONCE, INTRAVENOUS; 147.5 MG, ONCE, INTRAVENOUS; 150 MG, QD, INTRAVENOUS
     Route: 042
     Dates: start: 20090408, end: 20090408
  2. THYMOGLOBULIN [Suspect]
     Indication: APLASTIC ANAEMIA
     Dosage: 52.5 MG, ONCE, INTRAVENOUS; 147.5 MG, ONCE, INTRAVENOUS; 150 MG, QD, INTRAVENOUS
     Route: 042
     Dates: start: 20090408, end: 20090408
  3. THYMOGLOBULIN [Suspect]
     Indication: APLASTIC ANAEMIA
     Dosage: 52.5 MG, ONCE, INTRAVENOUS; 147.5 MG, ONCE, INTRAVENOUS; 150 MG, QD, INTRAVENOUS
     Route: 042
     Dates: start: 20090409, end: 20090412
  4. METHYLPREDNISOLONE [Concomitant]
  5. CYCLOSPORINE [Concomitant]
  6. G-CSF (GRANULOCYTE COLONY STIMULATING FACTOR0 [Concomitant]
  7. SULFAMETHOXAZOLE W (SULFAMETHOXAZOLE, TRIMETHOPRIM) [Concomitant]
  8. FLUCONAZOLE [Concomitant]
  9. UBIDECARENONE (UBIDECARENONE) [Concomitant]

REACTIONS (3)
  - CARDIAC FAILURE CONGESTIVE [None]
  - MOBILITY DECREASED [None]
  - RESPIRATORY DISORDER [None]
